FAERS Safety Report 24168412 (Version 1)
Quarter: 2024Q3

REPORT INFORMATION
  Report Type: Report from Study
  Country: US (occurrence: None)
  Receive Date: 20240802
  Receipt Date: 20240802
  Transmission Date: 20241017
  Serious: Yes (Hospitalization, Other)
  Sender: ASTRAZENECA
  Company Number: 2024A172409

PATIENT
  Sex: Male

DRUGS (18)
  1. FASENRA [Suspect]
     Active Substance: BENRALIZUMAB
     Indication: Sinus polyp degeneration
     Dosage: 30MG/ML EVERY EIGHT WEEKS
     Route: 058
     Dates: start: 202308
  2. SYMBICORT [Suspect]
     Active Substance: BUDESONIDE\FORMOTEROL FUMARATE DIHYDRATE
     Route: 055
  3. BUMIX [Concomitant]
  4. COLCHICINE [Concomitant]
     Active Substance: COLCHICINE
  5. IPRATROPIUM [Concomitant]
     Active Substance: IPRATROPIUM
  6. NOVOLOG PENF SOC [Concomitant]
  7. SOTALOL [Concomitant]
     Active Substance: SOTALOL
  8. TESTOSTERONE [Concomitant]
     Active Substance: TESTOSTERONE
  9. PREDNISONE [Concomitant]
     Active Substance: PREDNISONE
  10. ALBUTEROL [Concomitant]
     Active Substance: ALBUTEROL
  11. FLUTICASONE [Concomitant]
     Active Substance: FLUTICASONE
  12. FUROSEMIDE [Concomitant]
     Active Substance: FUROSEMIDE
  13. ISOSORBIDE [Concomitant]
     Active Substance: ISOSORBIDE
  14. LOSARTAN [Concomitant]
     Active Substance: LOSARTAN
  15. METOLAZONE [Concomitant]
     Active Substance: METOLAZONE
  16. MONTELUKAST [Concomitant]
     Active Substance: MONTELUKAST SODIUM
  17. POTASSIUM [Concomitant]
     Active Substance: POTASSIUM
     Dosage: 20MEQ
  18. SPIRIVA [Concomitant]
     Active Substance: TIOTROPIUM BROMIDE MONOHYDRATE

REACTIONS (3)
  - Thrombosis [Not Recovered/Not Resolved]
  - Dyspnoea [Not Recovered/Not Resolved]
  - Speech disorder [Not Recovered/Not Resolved]
